FAERS Safety Report 10420246 (Version 2)
Quarter: 2014Q3

REPORT INFORMATION
  Report Type: Spontaneous
  Country: US (occurrence: None)
  Receive Date: 20140701
  Receipt Date: 20140926
  Transmission Date: 20150326
  Serious: No
  Sender: FDA-Public Use
  Company Number: 1000065913

PATIENT
  Age: 80 Year
  Sex: Male

DRUGS (3)
  1. FIBER (POLYCARBOPHIL CALCIUM) [Concomitant]
     Active Substance: CALCIUM POLYCARBOPHIL
  2. LINZESS [Suspect]
     Active Substance: LINACLOTIDE
     Indication: CONSTIPATION
     Dosage: 1 IN 1 D
     Dates: start: 20140321, end: 20140331
  3. MAGNESIUM CITRATE. [Concomitant]
     Active Substance: MAGNESIUM CITRATE

REACTIONS (3)
  - Abdominal pain upper [None]
  - Flatulence [None]
  - Constipation [None]

NARRATIVE: CASE EVENT DATE: 20140321
